FAERS Safety Report 7516457-3 (Version None)
Quarter: 2011Q2

REPORT INFORMATION
  Report Type: 
  Country: None (occurrence: None)
  Receive Date: 20110601
  Receipt Date: 20110517
  Transmission Date: 20111010
  Serious: Yes (Hospitalization)
  Sender: FDA-Public Use
  Company Number: A0781133A

PATIENT
  Age: 75 Year
  Sex: Male
  Weight: 136.9 kg

DRUGS (9)
  1. DOXAZOSIN MESYLATE [Concomitant]
     Dates: end: 20050124
  2. INSULIN [Concomitant]
  3. VIAGRA [Concomitant]
  4. LEVOTHYROXINE SODIUM [Concomitant]
  5. PROCRIT [Concomitant]
  6. NORVASC [Concomitant]
     Dates: end: 20050124
  7. GEMFIBROZIL [Concomitant]
  8. AVANDIA [Suspect]
     Dosage: 4MG PER DAY
     Route: 048
     Dates: start: 20020601, end: 20050124
  9. LANOXIN [Concomitant]
     Dates: end: 20050101

REACTIONS (6)
  - CARDIAC DISORDER [None]
  - CHEST PAIN [None]
  - RENAL FAILURE [None]
  - ATRIOVENTRICULAR BLOCK COMPLETE [None]
  - CARDIAC FAILURE CONGESTIVE [None]
  - PLEURAL EFFUSION [None]
